FAERS Safety Report 17943309 (Version 1)
Quarter: 2020Q2

REPORT INFORMATION
  Report Type: Spontaneous
  Country: US (occurrence: US)
  Receive Date: 20200625
  Receipt Date: 20200625
  Transmission Date: 20200714
  Serious: No
  Sender: FDA-Public Use
  Company Number: US-PFIZER INC-2020243710

PATIENT
  Age: 66 Year
  Sex: Female
  Weight: 77.11 kg

DRUGS (8)
  1. BOSULIF [Suspect]
     Active Substance: BOSUTINIB MONOHYDRATE
     Dosage: 300 MG (SHE THEN TOOK 300 MG FOR A FEW DAYS )
     Route: 048
     Dates: start: 2020
  2. TRIAMCINOLONE [Concomitant]
     Active Substance: TRIAMCINOLONE
     Indication: RASH
     Dosage: 15 G, AS NEEDED (APPLY EXTERNALLY TO AFFECTED AREA 1-2 TIMES DAILY AS NEEDED)
     Dates: start: 20200603
  3. BOSULIF [Suspect]
     Active Substance: BOSUTINIB MONOHYDRATE
     Indication: CHRONIC MYELOID LEUKAEMIA
     Dosage: 200 MG (OVER A 2 WEEK PERIOD/ 1 WEEK OR 10 DAYS)
     Route: 048
     Dates: start: 2020
  4. BOSULIF [Suspect]
     Active Substance: BOSUTINIB MONOHYDRATE
     Dosage: 400 MG, EVERY OTHER DAY
     Route: 048
     Dates: start: 20200619
  5. BENADRYL [Concomitant]
     Active Substance: DIPHENHYDRAMINE HYDROCHLORIDE
     Indication: RASH
     Dosage: 100 MG (ONE TABLET EVERY 6 HOURS)
     Dates: start: 20200603
  6. MAG OXIDE [Concomitant]
     Active Substance: MAGNESIUM OXIDE
     Indication: MUSCLE SPASMS
     Dosage: 400 MG, 1X/DAY (ONE TABLET DAILY AT NIGHT)
     Dates: start: 20200514, end: 202006
  7. BOSULIF [Suspect]
     Active Substance: BOSUTINIB MONOHYDRATE
     Dosage: 400 MG, DAILY WITH BREAKFAST
     Route: 048
     Dates: start: 2020
  8. CYCLOBENZAPRINE. [Concomitant]
     Active Substance: CYCLOBENZAPRINE
     Indication: MUSCLE SPASMS
     Dosage: 5 MG, 1X/DAY (ONE TABLET AT NIGHT)
     Dates: start: 20200528

REACTIONS (3)
  - Muscle spasms [Unknown]
  - Rash erythematous [Not Recovered/Not Resolved]
  - Rash pruritic [Not Recovered/Not Resolved]

NARRATIVE: CASE EVENT DATE: 20200602
